FAERS Safety Report 6108660-4 (Version None)
Quarter: 2009Q1

REPORT INFORMATION
  Report Type: 
  Country: None (occurrence: None)
  Receive Date: 20090305
  Receipt Date: 20090217
  Transmission Date: 20090719
  Serious: Yes (Other)
  Sender: FDA-Public Use
  Company Number: 000426

PATIENT
  Sex: Male
  Weight: 90 kg

DRUGS (5)
  1. PROSTAVASIN /00501501/ (PROSTAVASIN) [Suspect]
     Indication: PERIPHERAL ISCHAEMIA
     Dosage: 40 U G QD INTRAVENOUS (NOT OTHERWISE SPECIFIED)
     Route: 042
     Dates: start: 20090206, end: 20090211
  2. BISOPROLOL [Concomitant]
  3. SPIRONOL [Concomitant]
  4. KALIPOZ [Concomitant]
  5. FUROSEMIDE [Concomitant]

REACTIONS (2)
  - BLOOD GLUCOSE INCREASED [None]
  - PANCREATITIS ACUTE [None]
